FAERS Safety Report 5619516-5 (Version None)
Quarter: 2008Q1

REPORT INFORMATION
  Report Type: 
  Country: None (occurrence: None)
  Receive Date: 20080111
  Receipt Date: 20071129
  Transmission Date: 20080703
  Serious: Yes (Hospitalization)
  Sender: FDA-Public Use
  Company Number: 2007SP004071

PATIENT
  Age: 84 Year
  Sex: Female
  Weight: 54.4316 kg

DRUGS (13)
  1. XOPENEX HFA [Suspect]
     Indication: BRONCHIECTASIS
     Dosage: 45 UG;PRN;INHALATION
     Route: 055
     Dates: start: 20070501
  2. IPRATROPIUM BROMIDE [Concomitant]
  3. ACTONEL [Concomitant]
  4. SYNTHROID [Concomitant]
  5. HYDROCODONE BITARTRATE [Concomitant]
  6. PHENYLEPHRINE [Concomitant]
  7. CALCIUM [Concomitant]
  8. CHLORPHENIRAMINE MALEATE [Concomitant]
  9. CENTRUM [Concomitant]
  10. CRESTOR [Concomitant]
  11. MAGNESIUM [Concomitant]
  12. LODINE [Concomitant]
  13. VITAMIN E [Concomitant]

REACTIONS (2)
  - ANGINA PECTORIS [None]
  - TACHYCARDIA [None]
